FAERS Safety Report 8247927-0 (Version None)
Quarter: 2012Q1

REPORT INFORMATION
  Report Type: 
  Country: None (occurrence: None)
  Receive Date: 20120330
  Receipt Date: 20120319
  Transmission Date: 20120608
  Serious: Yes (Hospitalization)
  Sender: FDA-Public Use
  Company Number: KR-BRISTOL-MYERS SQUIBB COMPANY-16489981

PATIENT
  Age: 66 Year
  Sex: Male

DRUGS (4)
  1. WARFARIN SODIUM [Interacting]
     Dosage: 1DF:2.5 TO 5-5.9MG
  2. TAMIFLU [Interacting]
     Dosage: FOR 5 DAYS
  3. PREDNISOLONE [Suspect]
  4. ACETAMINOPHEN [Suspect]

REACTIONS (2)
  - INTERNATIONAL NORMALISED RATIO INCREASED [None]
  - DRUG INTERACTION [None]
